FAERS Safety Report 15099329 (Version 1)
Quarter: 2018Q3

REPORT INFORMATION
  Report Type: Spontaneous
  Country: US (occurrence: US)
  Receive Date: 20180702
  Receipt Date: 20180702
  Transmission Date: 20181010
  Serious: Yes (Hospitalization, Other)
  Sender: FDA-Public Use
  Company Number: US-SHIRE-US201822649

PATIENT
  Age: 86 Year
  Sex: Male

DRUGS (1)
  1. GATTEX [Suspect]
     Active Substance: TEDUGLUTIDE\WATER
     Indication: SHORT-BOWEL SYNDROME
     Dosage: 0.16 UNK, UNK
     Route: 065
     Dates: start: 20170519

REACTIONS (3)
  - Infection [Unknown]
  - Inappropriate schedule of drug administration [Unknown]
  - Renal impairment [Unknown]

NARRATIVE: CASE EVENT DATE: 20180607
